FAERS Safety Report 9594455 (Version 2)
Quarter: 2015Q2

REPORT INFORMATION
  Report Type: Report from Study
  Country: GB (occurrence: GB)
  Receive Date: 20131004
  Receipt Date: 20150514
  Transmission Date: 20150821
  Serious: Yes (Hospitalization)
  Sender: FDA-Public Use
  Company Number: GB-ROCHE-1283590

PATIENT
  Age: 69 Year
  Sex: Male
  Weight: 75.5 kg

DRUGS (4)
  1. CISPLATIN. [Suspect]
     Active Substance: CISPLATIN
     Indication: GASTRIC CANCER
     Dosage: DOSE OF 118 MG GIVEN ON 31/JUL/2012
     Route: 042
     Dates: start: 20120612
  2. EPIRUBICIN [Suspect]
     Active Substance: EPIRUBICIN
     Indication: GASTRIC CANCER
     Dosage: DOSE OF 72 MG GIVEN ON 31/JUL/2012
     Route: 042
     Dates: start: 20120612
  3. CAPECITABINE. [Suspect]
     Active Substance: CAPECITABINE
     Indication: GASTRIC CANCER
     Dosage: DOSE OF 1300 MG GIVEN ON 31/JUL/2012
     Route: 048
     Dates: start: 20120612
  4. BEVACIZUMAB [Suspect]
     Active Substance: BEVACIZUMAB
     Indication: GASTRIC CANCER
     Dosage: ON 31/JUL/2012, DOSE OF 625 MG GIVEN
     Route: 042
     Dates: start: 20120612

REACTIONS (1)
  - Anastomotic leak [Recovered/Resolved]

NARRATIVE: CASE EVENT DATE: 20121009
